FAERS Safety Report 14403731 (Version 3)
Quarter: 2018Q1

REPORT INFORMATION
  Report Type: Spontaneous
  Country: JP (occurrence: JP)
  Receive Date: 20180117
  Receipt Date: 20180202
  Transmission Date: 20180509
  Serious: No
  Sender: FDA-Public Use
  Company Number: JP-PFIZER INC-2018022062

PATIENT
  Age: 10 Day
  Sex: Male
  Weight: 3.28 kg

DRUGS (3)
  1. FOSPHENYTOIN SODIUM. [Suspect]
     Active Substance: FOSPHENYTOIN SODIUM
     Indication: CONVULSION NEONATAL
     Dosage: UNK
  2. NOBELBAR [Suspect]
     Active Substance: PHENOBARBITAL SODIUM
     Indication: CONVULSION NEONATAL
     Dosage: UNK
     Route: 065
  3. MIDAZOLAM [Concomitant]
     Active Substance: MIDAZOLAM HYDROCHLORIDE
     Indication: CONVULSION NEONATAL
     Dosage: UNK
     Route: 065

REACTIONS (1)
  - Drug administered to patient of inappropriate age [Unknown]
